FAERS Safety Report 4406662-7 (Version None)
Quarter: 2004Q3

REPORT INFORMATION
  Report Type: 
  Country: None (occurrence: None)
  Receive Date: 20040720
  Receipt Date: 20040713
  Transmission Date: 20050211
  Serious: Yes (Life-Threatening)
  Sender: FDA-Public Use
  Company Number: BRO-007615

PATIENT
  Age: 85 Year
  Sex: Male

DRUGS (4)
  1. IOPAMIDOL [Suspect]
     Indication: AGE INDETERMINATE MYOCARDIAL INFARCTION
     Dosage: 100 ML
     Route: 022
     Dates: start: 20040617, end: 20040617
  2. IOPAMIDOL [Suspect]
     Indication: ARTERIOGRAM CORONARY
     Dosage: 100 ML
     Route: 022
     Dates: start: 20040617, end: 20040617
  3. IOPAMIDOL [Suspect]
     Indication: INFECTION PROPHYLAXIS
     Dosage: 100 ML
     Route: 022
     Dates: start: 20040617, end: 20040617
  4. CEFCAPENE PIVOXIL HYDROCHLORIDE / FLOMOX [Suspect]
     Indication: INFECTION PROPHYLAXIS
     Dosage: 300 MG
     Route: 048
     Dates: start: 20040617, end: 20040617

REACTIONS (2)
  - FUNGAL INFECTION [None]
  - STEVENS-JOHNSON SYNDROME [None]
